FAERS Safety Report 4963109-X (Version None)
Quarter: 2006Q2

REPORT INFORMATION
  Report Type: 
  Country: None (occurrence: None)
  Receive Date: 20060405
  Receipt Date: 20060331
  Transmission Date: 20061013
  Serious: Yes (Other)
  Sender: FDA-Public Use
  Company Number: FR-GLAXOSMITHKLINE-B0418830A

PATIENT
  Age: 80 Year
  Sex: Male

DRUGS (3)
  1. AVANDIA [Suspect]
     Indication: DIABETES MELLITUS NON-INSULIN-DEPENDENT
     Dosage: 4MG PER DAY
     Route: 048
  2. DIAMICRON [Suspect]
     Dosage: 30MG PER DAY
     Route: 065
  3. COZAAR [Suspect]
     Dosage: 1MG PER DAY
     Route: 065

REACTIONS (3)
  - ANAEMIA MACROCYTIC [None]
  - NEUTROPENIA [None]
  - PLATELET COUNT DECREASED [None]
